FAERS Safety Report 9964421 (Version 1)
Quarter: 2014Q1

REPORT INFORMATION
  Report Type: Spontaneous
  Country: IT (occurrence: IT)
  Receive Date: 20140305
  Receipt Date: 20140305
  Transmission Date: 20141002
  Serious: Yes (Hospitalization)
  Sender: FDA-Public Use
  Company Number: IT-PFIZER INC-2014064361

PATIENT
  Age: 27 Year
  Sex: Male

DRUGS (1)
  1. XANAX [Suspect]
     Dosage: UNK
     Route: 048
     Dates: start: 20131012, end: 20131012

REACTIONS (2)
  - Drug abuse [Recovering/Resolving]
  - Vomiting [Recovering/Resolving]
